FAERS Safety Report 16274151 (Version 2)
Quarter: 2019Q2

REPORT INFORMATION
  Report Type: Spontaneous
  Country: CN (occurrence: CN)
  Receive Date: 20190504
  Receipt Date: 20190524
  Transmission Date: 20190711
  Serious: Yes (Life-Threatening)
  Sender: FDA-Public Use
  Company Number: CN-ACCORD-125616

PATIENT
  Age: 3 Year
  Sex: Female

DRUGS (4)
  1. VALPROIC ACID. [Suspect]
     Active Substance: VALPROIC ACID
     Indication: SEIZURE
     Dosage: ALSO RECEIVED AT 3.5 YEARS OF AGE FOR MYOCLONIC SEIZURE
     Route: 064
  2. LEVETIRACETAM. [Suspect]
     Active Substance: LEVETIRACETAM
     Indication: SEIZURE
     Dosage: BATCH NUMBER (1011) WAS ADDED FOR LEVETIRACETAM (NON-MAH PRODUCT).
     Route: 064
     Dates: start: 201606
  3. LAMOTRIGINE. [Suspect]
     Active Substance: LAMOTRIGINE
     Indication: SEIZURE
     Route: 064
  4. CLONAZEPAM. [Concomitant]
     Active Substance: CLONAZEPAM
     Indication: MYOCLONIC EPILEPSY

REACTIONS (3)
  - Foetal exposure during pregnancy [Unknown]
  - Condition aggravated [Recovered/Resolved]
  - Drug ineffective [Unknown]
